FAERS Safety Report 4357427-6 (Version None)
Quarter: 2004Q2

REPORT INFORMATION
  Report Type: 
  Country: None (occurrence: None)
  Receive Date: 20040506
  Receipt Date: 20040429
  Transmission Date: 20050107
  Serious: Yes (Life-Threatening)
  Sender: FDA-Public Use
  Company Number: HQWYE648529APR04

PATIENT

DRUGS (1)
  1. AMIODARONE HCL [Suspect]
     Indication: VENTRICULAR TACHYCARDIA
     Dosage: 400 MG 1 X PER 1 DAY, ORAL
     Route: 048
     Dates: start: 20040412, end: 20040401

REACTIONS (3)
  - INTERSTITIAL LUNG DISEASE [None]
  - PULMONARY HAEMORRHAGE [None]
  - RESPIRATORY DISORDER [None]
